FAERS Safety Report 7247789-4 (Version None)
Quarter: 2011Q1

REPORT INFORMATION
  Report Type: 
  Country: None (occurrence: None)
  Receive Date: 20110127
  Receipt Date: 20110118
  Transmission Date: 20110831
  Serious: Yes (Death)
  Sender: FDA-Public Use
  Company Number: US-ELI_LILLY_AND_COMPANY-US201101000097

PATIENT
  Sex: Male
  Weight: 73.016 kg

DRUGS (3)
  1. ARICEPT [Concomitant]
  2. PLAVIX [Concomitant]
  3. ZYPREXA [Suspect]
     Indication: HALLUCINATION
     Dosage: 5 MG, EACH EVENING
     Dates: start: 20060101

REACTIONS (1)
  - MYOCARDIAL INFARCTION [None]
